FAERS Safety Report 11350759 (Version 1)
Quarter: 2015Q3

REPORT INFORMATION
  Report Type: Spontaneous
  Country: US (occurrence: US)
  Receive Date: 20150807
  Receipt Date: 20150807
  Transmission Date: 20151125
  Serious: No
  Sender: FDA-Public Use
  Company Number: US-JNJFOC-20140917722

PATIENT
  Age: 72 Year
  Sex: Female
  Weight: 88.45 kg

DRUGS (6)
  1. LIPITOR [Concomitant]
     Active Substance: ATORVASTATIN CALCIUM
     Indication: BLOOD CHOLESTEROL INCREASED
     Dosage: 25 YEARS
     Route: 065
  2. MENS ROGAINE EXTRA STRENGTH [Suspect]
     Active Substance: MINOXIDIL
     Indication: HAIR GROWTH ABNORMAL
     Dosage: CAPFUL ONCE IN THE MORNING FOR ABOUT 6 WEEKS
     Route: 061
  3. MENS ROGAINE EXTRA STRENGTH [Suspect]
     Active Substance: MINOXIDIL
     Route: 061
  4. BAYER ASPIRIN [Concomitant]
     Active Substance: ASPIRIN
     Indication: PROPHYLAXIS
     Dosage: 25 YEARS
     Route: 065
  5. METOPROLOL [Concomitant]
     Active Substance: METOPROLOL
     Indication: HYPERTENSION
     Dosage: 25 YEARS
     Route: 065
  6. DIOVAN/HCT [Concomitant]
     Indication: HYPERTENSION
     Dosage: 25 YEARS
     Route: 065

REACTIONS (3)
  - Underdose [Unknown]
  - Alopecia [Not Recovered/Not Resolved]
  - Wrong patient received medication [Unknown]
